FAERS Safety Report 8618606-2 (Version None)
Quarter: 2012Q3

REPORT INFORMATION
  Report Type: 
  Country: None (occurrence: None)
  Receive Date: 20120824
  Receipt Date: 20120821
  Transmission Date: 20120928
  Serious: No
  Sender: FDA-Public Use
  Company Number: US-PFIZER INC-2012161224

PATIENT
  Age: 52 Year
  Sex: Female

DRUGS (8)
  1. HYDROCODONE [Suspect]
     Dosage: UNK
  2. NITROFURANTOIN [Suspect]
     Dosage: UNK
  3. MORPHINE SULFATE [Suspect]
     Dosage: UNK
  4. OXYCODONE HYDROCHLORIDE [Suspect]
     Dosage: UNK
  5. CIPROFLOXACIN [Suspect]
     Dosage: UNK
  6. CODEINE SULFATE [Suspect]
     Dosage: UNK
  7. HYDROMORPHONE HCL [Suspect]
     Dosage: UNK
  8. CLAVULANIC ACID [Suspect]
     Dosage: UNK

REACTIONS (1)
  - DRUG HYPERSENSITIVITY [None]
